FAERS Safety Report 6018727-7 (Version None)
Quarter: 2008Q4

REPORT INFORMATION
  Report Type: 
  Country: None (occurrence: None)
  Receive Date: 20081223
  Receipt Date: 20081208
  Transmission Date: 20090506
  Serious: Yes (Death)
  Sender: FDA-Public Use
  Company Number: NL-GENENTECH-274346

PATIENT
  Age: 3 Year
  Sex: Male

DRUGS (1)
  1. RITUXAN [Suspect]
     Indication: EPSTEIN-BARR VIRUS INFECTION
     Dosage: 375 MG/M2, 1/WEEK

REACTIONS (1)
  - GRAFT VERSUS HOST DISEASE [None]
